FAERS Safety Report 21024056 (Version 9)
Quarter: 2023Q1

REPORT INFORMATION
  Report Type: Report from Study
  Country: CA (occurrence: CA)
  Receive Date: 20220629
  Receipt Date: 20230308
  Transmission Date: 20230418
  Serious: Yes (Other)
  Sender: FDA-Public Use
  Company Number: CA-GILEAD-2022-0584875

PATIENT
  Age: 59 Year
  Sex: Female

DRUGS (15)
  1. SACITUZUMAB GOVITECAN-HZIY [Suspect]
     Active Substance: SACITUZUMAB GOVITECAN-HZIY
     Indication: Triple negative breast cancer
     Dosage: 591 MG
     Route: 042
  2. SACITUZUMAB GOVITECAN-HZIY [Suspect]
     Active Substance: SACITUZUMAB GOVITECAN-HZIY
     Dosage: 580 MG, C1D1 AND C1 D8
     Route: 042
     Dates: start: 20220527
  3. SACITUZUMAB GOVITECAN-HZIY [Suspect]
     Active Substance: SACITUZUMAB GOVITECAN-HZIY
     Dosage: C2D1 EARLY DOSE
     Route: 042
     Dates: start: 20220616
  4. SACITUZUMAB GOVITECAN-HZIY [Suspect]
     Active Substance: SACITUZUMAB GOVITECAN-HZIY
     Dosage: 580 MG, C1D1 AND C1 D8
     Route: 042
     Dates: start: 20220527
  5. CAPECITABINE [Concomitant]
     Active Substance: CAPECITABINE
     Dates: start: 202001, end: 202102
  6. CARBOPLATIN\GEMCITABINE [Concomitant]
     Active Substance: CARBOPLATIN\GEMCITABINE
  7. DEXAMETHASONE [Concomitant]
     Active Substance: DEXAMETHASONE
     Dosage: 4 MG ORAL (PRE-MEDICATION PRIOR TO TRODELVY)
  8. FAMOTIDINE [Concomitant]
     Active Substance: FAMOTIDINE
     Dosage: 20 MG ORAL (PRE-MEDICATION PRIOR TO TRODELVY)
  9. FAMOTIDINE [Concomitant]
     Active Substance: FAMOTIDINE
     Dosage: 20 MG ORAL (PRE-MEDICATION PRIOR TO TRODELVY)
  10. AKYNZEO (NETUPITANT\PALONOSETRON) [Concomitant]
     Active Substance: NETUPITANT\PALONOSETRON
     Dosage: 300 MG ORAL (PRE-MEDICATION PRIOR TO TRODELVY)
  11. XGEVA [Concomitant]
     Active Substance: DENOSUMAB
     Dosage: UNK
     Dates: start: 20220907
  12. XGEVA [Concomitant]
     Active Substance: DENOSUMAB
     Dosage: 120 MG
  13. AKYNZEO (NETUPITANT\PALONOSETRON) [Concomitant]
     Active Substance: NETUPITANT\PALONOSETRON
  14. CITALOPRAM [Concomitant]
     Active Substance: CITALOPRAM HYDROBROMIDE
     Dosage: 20 MG
  15. CITALOPRAM [Concomitant]
     Active Substance: CITALOPRAM HYDROBROMIDE
     Dosage: 20 MG

REACTIONS (13)
  - Lymphadenectomy [Unknown]
  - Fatigue [Not Recovered/Not Resolved]
  - Alopecia [Not Recovered/Not Resolved]
  - Weight fluctuation [Unknown]
  - Poor quality sleep [Not Recovered/Not Resolved]
  - Irritability [Not Recovered/Not Resolved]
  - Ill-defined disorder [Unknown]
  - Inappropriate schedule of product administration [Recovered/Resolved]
  - Inappropriate schedule of product administration [Recovered/Resolved]
  - Hypotension [Unknown]
  - Weight fluctuation [Unknown]
  - Incorrect dosage administered [None]
  - Infusion [Unknown]

NARRATIVE: CASE EVENT DATE: 20220616
